APPROVED DRUG PRODUCT: EPLERENONE
Active Ingredient: EPLERENONE
Strength: 25MG
Dosage Form/Route: TABLET;ORAL
Application: A212765 | Product #001 | TE Code: AB
Applicant: ADAPTIS PHARMA PRIVATE LTD
Approved: Aug 10, 2020 | RLD: No | RS: No | Type: RX